FAERS Safety Report 19350136 (Version 2)
Quarter: 2021Q2

REPORT INFORMATION
  Report Type: Report from Study
  Country: None (occurrence: NL)
  Receive Date: 20210531
  Receipt Date: 20210602
  Transmission Date: 20210717
  Serious: Yes (Death, Life-Threatening, Other)
  Sender: FDA-Public Use
  Company Number: NL-ABBVIE-21K-114-3928105-00

PATIENT
  Age: 88 Year
  Sex: Male

DRUGS (2)
  1. DUODOPA [Suspect]
     Active Substance: CARBIDOPA\LEVODOPA
     Dosage: MD: 9.0 ML, CD: 2.3 ML/H, ED: 2.0 ML
     Route: 050
     Dates: end: 2021
  2. DUODOPA [Suspect]
     Active Substance: CARBIDOPA\LEVODOPA
     Indication: PARKINSON^S DISEASE
     Dosage: MD: 6.0 ML, CD: 1.5 ML/H, ED: 1.0 ML
     Route: 050
     Dates: start: 20201207

REACTIONS (4)
  - Cardiac arrest [Not Recovered/Not Resolved]
  - Terminal state [Not Recovered/Not Resolved]
  - Disease progression [Fatal]
  - Apathy [Fatal]

NARRATIVE: CASE EVENT DATE: 2021
